FAERS Safety Report 7791351-1 (Version None)
Quarter: 2011Q4

REPORT INFORMATION
  Report Type: 
  Country: None (occurrence: None)
  Receive Date: 20111003
  Receipt Date: 20110923
  Transmission Date: 20120403
  Serious: No
  Sender: FDA-Public Use
  Company Number: US-BIOGENIDEC-2011BI036630

PATIENT
  Age: 63 Year
  Sex: Female

DRUGS (1)
  1. AVONEX [Suspect]
     Indication: MULTIPLE SCLEROSIS
     Route: 030
     Dates: start: 20110301

REACTIONS (6)
  - BREAST DISORDER [None]
  - ASTHENIA [None]
  - VOMITING [None]
  - PARANASAL SINUS HYPERSECRETION [None]
  - ANXIETY [None]
  - HEADACHE [None]
